FAERS Safety Report 20182516 (Version 1)
Quarter: 2021Q4

REPORT INFORMATION
  Report Type: Report from Study
  Country: TW (occurrence: TW)
  Receive Date: 20211214
  Receipt Date: 20211214
  Transmission Date: 20220303
  Serious: Yes (Death, Hospitalization, Other)
  Sender: FDA-Public Use
  Company Number: TW-BAYER-2021-164865

PATIENT
  Age: 57 Year
  Sex: Male

DRUGS (2)
  1. ADEMPAS [Suspect]
     Active Substance: RIOCIGUAT
     Indication: Pulmonary arterial hypertension
     Dosage: 1 DF, TID
     Route: 048
     Dates: start: 20210415, end: 20210703
  2. ASPIRIN [Concomitant]
     Active Substance: ASPIRIN
     Dosage: 100 MG, QD
     Dates: start: 20210401, end: 20210703

REACTIONS (9)
  - Urosepsis [Fatal]
  - Pulmonary arterial hypertension [Fatal]
  - Haemoptysis [Fatal]
  - Pulmonary oedema [Not Recovered/Not Resolved]
  - Septic shock [None]
  - Generalised oedema [Not Recovered/Not Resolved]
  - Wheezing [None]
  - Discomfort [Not Recovered/Not Resolved]
  - Incorrect dose administered [None]

NARRATIVE: CASE EVENT DATE: 20210101
